FAERS Safety Report 15240778 (Version 4)
Quarter: 2018Q4

REPORT INFORMATION
  Report Type: Report from Study
  Country: US (occurrence: US)
  Receive Date: 20180804
  Receipt Date: 20181119
  Transmission Date: 20190204
  Serious: Yes (Life-Threatening)
  Sender: FDA-Public Use
  Company Number: PHEH2018US031949

PATIENT
  Sex: Female

DRUGS (3)
  1. COSENTYX [Suspect]
     Active Substance: SECUKINUMAB
     Indication: PSORIATIC ARTHROPATHY
     Dosage: 150 MG, QW
     Route: 058
  2. FISH OIL [Concomitant]
     Active Substance: FISH OIL
     Indication: PRODUCT USED FOR UNKNOWN INDICATION
  3. COSENTYX [Suspect]
     Active Substance: SECUKINUMAB
     Dosage: 150 MG, QMO
     Route: 058

REACTIONS (6)
  - Arthralgia [Not Recovered/Not Resolved]
  - Ear infection [Unknown]
  - Eye infection [Unknown]
  - Skin discolouration [Unknown]
  - Therapeutic response shortened [Unknown]
  - Psoriatic arthropathy [Not Recovered/Not Resolved]
